FAERS Safety Report 4706819-1 (Version None)
Quarter: 2005Q3

REPORT INFORMATION
  Report Type: 
  Country: None (occurrence: None)
  Receive Date: 20050705
  Receipt Date: 20050620
  Transmission Date: 20060218
  Serious: Yes (Other)
  Sender: FDA-Public Use
  Company Number: 2005081588

PATIENT
  Sex: Male
  Weight: 76.2043 kg

DRUGS (8)
  1. VIAGRA [Suspect]
     Indication: ERECTILE DYSFUNCTION
     Dosage: (100 MG), ORAL
     Route: 048
     Dates: start: 20030101, end: 20050101
  2. VIAGRA [Suspect]
     Indication: POST-TRAUMATIC STRESS DISORDER
     Dosage: (100 MG), ORAL
     Route: 048
     Dates: start: 20030101, end: 20050101
  3. SERZONE [Concomitant]
  4. LORAZEPAM [Concomitant]
  5. NIZATIDINE [Concomitant]
  6. ACIPHEX [Concomitant]
  7. IBUPROFEN [Concomitant]
  8. LOVASTATIN [Concomitant]

REACTIONS (12)
  - ARTERIAL OCCLUSIVE DISEASE [None]
  - BLOOD CHOLESTEROL INCREASED [None]
  - BODY HEIGHT DECREASED [None]
  - BONE PAIN [None]
  - CARDIAC STRESS TEST ABNORMAL [None]
  - CHEST PAIN [None]
  - CORONARY ARTERY OCCLUSION [None]
  - DRUG EFFECT DECREASED [None]
  - ELECTROCARDIOGRAM ABNORMAL [None]
  - NASOPHARYNGITIS [None]
  - PHOTOPHOBIA [None]
  - POLLAKIURIA [None]
